FAERS Safety Report 8390762-3 (Version None)
Quarter: 2012Q2

REPORT INFORMATION
  Report Type: 
  Country: None (occurrence: None)
  Receive Date: 20120529
  Receipt Date: 20120521
  Transmission Date: 20120825
  Serious: Yes (Hospitalization)
  Sender: FDA-Public Use
  Company Number: DE-UCBSA-054025

PATIENT
  Sex: Male
  Weight: 76 kg

DRUGS (8)
  1. RAMIPRIL [Concomitant]
     Indication: HYPERTENSION
     Route: 048
     Dates: start: 20070911
  2. METHOTREXATE [Concomitant]
     Indication: RHEUMATOID ARTHRITIS
     Route: 058
     Dates: start: 20080715, end: 20120101
  3. CIMZIA [Suspect]
     Indication: RHEUMATOID ARTHRITIS
     Dosage: NO. OF DOSES RECEIVED: 6X
     Route: 058
     Dates: start: 20111202, end: 20120201
  4. PREDNISOLONE [Concomitant]
     Indication: RHEUMATOID ARTHRITIS
     Route: 048
     Dates: start: 20070911
  5. PANTOPRAZOLE [Concomitant]
     Indication: GASTRITIS PROPHYLAXIS
     Route: 048
     Dates: start: 20101221
  6. CALCIUM [Concomitant]
     Indication: OSTEOPOROSIS
     Dosage: DALIY DOSE 1000 MG
     Route: 048
     Dates: start: 20080715
  7. VIT D3 [Concomitant]
     Indication: OSTEOPOROSIS PROPHYLAXIS
     Dates: start: 20080715
  8. ACETYL SALICYL ACID [Concomitant]
     Route: 048
     Dates: start: 20120201

REACTIONS (2)
  - PERITONITIS [None]
  - LARGE INTESTINE PERFORATION [None]
